FAERS Safety Report 8007052-0 (Version None)
Quarter: 2011Q4

REPORT INFORMATION
  Report Type: 
  Country: None (occurrence: None)
  Receive Date: 20111227
  Receipt Date: 20111219
  Transmission Date: 20120403
  Serious: Yes (Hospitalization)
  Sender: FDA-Public Use
  Company Number: US-BAYER-2011-006945

PATIENT
  Age: 21 Year
  Sex: Female
  Weight: 63.492 kg

DRUGS (7)
  1. YAZ [Suspect]
     Indication: CONTRACEPTION
     Dosage: UNK
     Dates: start: 20071101, end: 20080201
  2. TORADOL [Concomitant]
     Dosage: UNK
     Dates: start: 20071201
  3. ZITHROMAX [Concomitant]
     Dosage: UNK
     Dates: start: 20071201
  4. YAZ [Suspect]
     Indication: PREMENSTRUAL SYNDROME
  5. BACTRIM [Concomitant]
     Dosage: UNK
     Dates: start: 20071230
  6. ULTRAM [Concomitant]
     Dosage: UNK
     Dates: start: 20071230
  7. IBUPROFEN [Concomitant]

REACTIONS (6)
  - PULMONARY EMBOLISM [None]
  - INJURY [None]
  - PSYCHOLOGICAL TRAUMA [None]
  - BLOOD POTASSIUM DECREASED [None]
  - PAIN [None]
  - EMOTIONAL DISTRESS [None]
